FAERS Safety Report 5280029-4 (Version None)
Quarter: 2007Q1

REPORT INFORMATION
  Report Type: 
  Country: None (occurrence: None)
  Receive Date: 20070329
  Receipt Date: 20070319
  Transmission Date: 20070707
  Serious: Yes (Life-Threatening, Hospitalization)
  Sender: FDA-Public Use
  Company Number: SE-AMGEN-UK204823

PATIENT
  Sex: Female

DRUGS (9)
  1. NEUPOGEN [Suspect]
     Indication: CHEMOTHERAPY
     Route: 058
     Dates: start: 20061203, end: 20061212
  2. CYCLOPHOSPHAMIDE [Concomitant]
  3. VINCRISTINE [Concomitant]
  4. ADRIAMYCIN PFS [Concomitant]
  5. DEXAMETHASONE [Concomitant]
  6. PANTOPRAZOLE SODIUM [Concomitant]
  7. LORABID [Concomitant]
  8. ACYCLOVIR [Concomitant]
  9. ALLOPURINOL [Concomitant]

REACTIONS (5)
  - BONE MARROW ISCHAEMIA [None]
  - BONE MARROW NECROSIS [None]
  - BONE PAIN [None]
  - ERYTHEMA INFECTIOSUM [None]
  - PYREXIA [None]
